FAERS Safety Report 6330727-6 (Version None)
Quarter: 2009Q3

REPORT INFORMATION
  Report Type: 
  Country: None (occurrence: None)
  Receive Date: 20090827
  Receipt Date: 20090819
  Transmission Date: 20100115
  Serious: Yes (Other)
  Sender: FDA-Public Use
  Company Number: US-TYCO HEALTHCARE/MALLINCKRODT-T200801494

PATIENT
  Sex: Female

DRUGS (26)
  1. OPTIMARK [Suspect]
     Indication: NUCLEAR MAGNETIC RESONANCE IMAGING
     Dosage: UNK, SINGLE
     Dates: start: 20040210, end: 20040210
  2. OPTIMARK [Suspect]
     Indication: NUCLEAR MAGNETIC RESONANCE IMAGING BRAIN
     Dates: start: 20040216, end: 20040216
  3. OPTIMARK [Suspect]
     Dosage: UNK
     Dates: start: 20040804, end: 20040804
  4. OPTIMARK [Suspect]
     Dosage: 15 ML, SINGLE
     Dates: start: 20041028, end: 20041028
  5. MAGNEVIST [Suspect]
     Indication: NUCLEAR MAGNETIC RESONANCE IMAGING
     Dosage: UNK, SINGLE
     Dates: start: 20050224, end: 20050224
  6. MAGNEVIST [Suspect]
     Indication: NUCLEAR MAGNETIC RESONANCE IMAGING BRAIN
     Dates: start: 20050224, end: 20050224
  7. MAGNEVIST [Suspect]
     Dosage: UNK, SINGLE
     Dates: start: 20050908, end: 20050908
  8. MAGNEVIST [Suspect]
     Dates: start: 20050908, end: 20050908
  9. MAGNEVIST [Suspect]
     Dates: start: 20051110, end: 20051110
  10. MAGNEVIST [Suspect]
     Dates: start: 20060523, end: 20060523
  11. MAGNEVIST [Suspect]
     Dosage: 17 ML, SINGLE
     Dates: start: 20060923, end: 20060923
  12. AMBIEN CR [Concomitant]
     Indication: SLEEP DISORDER
     Dosage: 12.5 MG, QD
  13. AMITRIPTYLINE HYDROCHLORIDE [Concomitant]
     Indication: ANTIDEPRESSANT THERAPY
     Dosage: 25 MG, QD
  14. FLUCONAZOLE [Concomitant]
     Indication: ANTIFUNGAL TREATMENT
     Dosage: 200 MG, QD
     Dates: start: 20030101
  15. HYDROCODONE BITARTRATE AND ACETAMINOPHEN [Concomitant]
     Indication: PAIN
     Dosage: UNK, PRN
     Dates: start: 20030101
  16. LANOXIN [Concomitant]
     Indication: PALPITATIONS
     Dosage: 125 MG, QOD
  17. NORVASC [Concomitant]
     Indication: HYPERTENSION
     Dosage: 5/500 TWICE DAILY
     Dates: start: 19970101
  18. PROGRAF [Concomitant]
     Indication: PROPHYLAXIS AGAINST TRANSPLANT REJECTION
     Dates: start: 19960101
  19. RENAGEL                            /01459901/ [Concomitant]
     Indication: MINERAL SUPPLEMENTATION
     Dosage: 800 MG, TID
  20. WARFARIN [Concomitant]
     Indication: COAGULOPATHY
     Dosage: 1 MG, QD
     Dates: start: 20070101
  21. SODIUM THIOSULFATE [Concomitant]
     Indication: DRUG THERAPY
     Dates: start: 20080101
  22. EPOGEN [Concomitant]
     Indication: HORMONE THERAPY
     Dates: start: 20030101
  23. IRON [Concomitant]
     Dates: start: 20030101
  24. OTHER VITAMIN PRODUCTS, COMBINATIONS [Concomitant]
     Dates: start: 20030101
  25. INSULIN [Concomitant]
     Indication: DIABETES MELLITUS
     Dosage: UNK, UNK
     Dates: start: 19960101
  26. PREDNISONE TAB [Concomitant]
     Indication: DRUG THERAPY
     Dates: start: 19960101

REACTIONS (11)
  - ABASIA [None]
  - ARTERIOVENOUS FISTULA SITE COMPLICATION [None]
  - BASAL CELL CARCINOMA [None]
  - CHEST PAIN [None]
  - DYSPNOEA [None]
  - GASTROENTERITIS [None]
  - NEPHROGENIC SYSTEMIC FIBROSIS [None]
  - OFF LABEL USE [None]
  - RENAL CANCER [None]
  - SQUAMOUS CELL CARCINOMA [None]
  - WHEELCHAIR USER [None]
